FAERS Safety Report 18182744 (Version 1)
Quarter: 2020Q3

REPORT INFORMATION
  Report Type: Spontaneous
  Country: FR (occurrence: FR)
  Receive Date: 20200821
  Receipt Date: 20200821
  Transmission Date: 20201103
  Serious: Yes (Hospitalization, Other)
  Sender: FDA-Public Use
  Company Number: FR-GILEAD-2020-0491449

PATIENT
  Age: 24 Year
  Sex: Male
  Weight: 51 kg

DRUGS (6)
  1. BIKTARVY [Suspect]
     Active Substance: BICTEGRAVIR SODIUM\EMTRICITABINE\TENOFOVIR ALAFENAMIDE FUMARATE
     Indication: ACQUIRED IMMUNODEFICIENCY SYNDROME
     Route: 048
     Dates: start: 20200625, end: 20200629
  2. KEPPRA [Concomitant]
     Active Substance: LEVETIRACETAM
  3. ADIAZINE 500 MG, COMPRIM? [Suspect]
     Active Substance: SULFADIAZINE
     Indication: CEREBRAL TOXOPLASMOSIS
     Route: 048
     Dates: start: 20200617, end: 20200629
  4. LEVOTHYROXINE SODIQUE [Concomitant]
     Active Substance: LEVOTHYROXINE SODIUM
  5. MALOCIDE 50 MG, COMPRIM? [Suspect]
     Active Substance: PYRIMETHAMINE
     Indication: CEREBRAL TOXOPLASMOSIS
     Route: 048
     Dates: start: 20200617, end: 20200630
  6. ACIDE FOLIQUE [Concomitant]
     Active Substance: FOLIC ACID

REACTIONS (2)
  - Rash maculo-papular [Recovered/Resolved]
  - Hepatocellular injury [Recovering/Resolving]

NARRATIVE: CASE EVENT DATE: 20200626
